FAERS Safety Report 4705585-3 (Version None)
Quarter: 2005Q2

REPORT INFORMATION
  Report Type: 
  Country: None (occurrence: None)
  Receive Date: 20050629
  Receipt Date: 20040906
  Transmission Date: 20051028
  Serious: Yes (Hospitalization)
  Sender: FDA-Public Use
  Company Number: 200120165EU

PATIENT
  Age: 51 Year
  Sex: Male

DRUGS (5)
  1. CISPLATIN [Suspect]
     Indication: SQUAMOUS CELL CARCINOMA
     Dosage: 75 MG/M**2 Q3W IV
     Route: 042
     Dates: start: 20010801, end: 20010801
  2. CISPLATIN [Suspect]
     Indication: SQUAMOUS CELL CARCINOMA
     Dosage: 75 MG/M**2 Q3W IV
     Route: 042
     Dates: start: 20010829, end: 20010829
  3. MST [Concomitant]
  4. ZOFRAN [Concomitant]
  5. FORTECORTIN [Concomitant]

REACTIONS (2)
  - ABDOMINAL PAIN UPPER [None]
  - BACK PAIN [None]
